FAERS Safety Report 12081161 (Version 3)
Quarter: 2017Q3

REPORT INFORMATION
  Report Type: Report from Study
  Country: US (occurrence: US)
  Receive Date: 20160216
  Receipt Date: 20170908
  Transmission Date: 20171127
  Serious: Yes (Hospitalization)
  Sender: FDA-Public Use
  Company Number: US-SA-2016SA030916

PATIENT
  Age: 36 Year
  Sex: Female

DRUGS (1)
  1. LEMTRADA [Suspect]
     Active Substance: ALEMTUZUMAB
     Indication: MULTIPLE SCLEROSIS
     Route: 041
     Dates: start: 20151116, end: 20151120

REACTIONS (8)
  - Pain [Unknown]
  - Feeling abnormal [Recovered/Resolved]
  - Mass [Unknown]
  - Sepsis [Unknown]
  - Pneumonia [Unknown]
  - Pain in jaw [Unknown]
  - CSF volume increased [Unknown]
  - Movement disorder [Unknown]
